FAERS Safety Report 15592978 (Version 3)
Quarter: 2019Q1

REPORT INFORMATION
  Report Type: Spontaneous
  Country: JP (occurrence: JP)
  Receive Date: 20181107
  Receipt Date: 20190107
  Transmission Date: 20190417
  Serious: Yes (Other)
  Sender: FDA-Public Use
  Company Number: JP-MYLANLABS-2018M1083505

PATIENT
  Sex: Male
  Weight: 73 kg

DRUGS (1)
  1. CILOSTAZOL. [Suspect]
     Active Substance: CILOSTAZOL
     Indication: EMBOLISM
     Route: 048

REACTIONS (3)
  - Tachycardia [Unknown]
  - Ventricular tachycardia [Unknown]
  - Off label use [Unknown]
